FAERS Safety Report 9454370 (Version 4)
Quarter: 2013Q3

REPORT INFORMATION
  Report Type: Spontaneous
  Country: JP (occurrence: JP)
  Receive Date: 20130812
  Receipt Date: 20130906
  Transmission Date: 20140515
  Serious: Yes (Hospitalization, Disabling)
  Sender: FDA-Public Use
  Company Number: JP-BRISTOL-MYERS SQUIBB COMPANY-19178110

PATIENT
  Age: 62 Year
  Sex: Male
  Weight: 40.9 kg

DRUGS (12)
  1. ELIQUIS [Suspect]
     Indication: THROMBOSIS
     Dosage: TABS?DOSE:2.5MG TABS BID
     Route: 048
     Dates: start: 20130613, end: 201306
  2. ELIQUIS [Suspect]
     Indication: ATRIAL FIBRILLATION
     Dosage: TABS?DOSE:2.5MG TABS BID
     Route: 048
     Dates: start: 20130613, end: 201306
  3. LASIX [Concomitant]
     Indication: DIURETIC THERAPY
     Route: 048
     Dates: start: 20130608
  4. ARTIST [Concomitant]
     Indication: CARDIAC FAILURE
     Dosage: TABS
     Route: 048
     Dates: start: 20130531
  5. ARTIST [Concomitant]
     Indication: ATRIAL FIBRILLATION
     Dosage: TABS
     Route: 048
     Dates: start: 20130531
  6. DIOVAN [Concomitant]
     Indication: CARDIAC FAILURE
     Dosage: TABS
     Route: 048
     Dates: start: 20130524
  7. AMIODARONE HCL [Concomitant]
     Indication: ARRHYTHMIA
     Route: 048
     Dates: start: 20130611
  8. PARIET [Concomitant]
     Indication: GASTRIC ULCER
     Route: 048
     Dates: start: 20130530
  9. PROMAC [Concomitant]
  10. SAMSCA [Concomitant]
     Indication: POLYURIA
     Dosage: TABS
     Route: 048
     Dates: start: 20130516
  11. HEPARIN [Concomitant]
     Indication: THROMBOSIS
     Dosage: 1DF=12000 UNITS NOT SPECIFIED
     Route: 042
     Dates: start: 20130516, end: 20130613
  12. OMEPRAL [Concomitant]
     Indication: GASTRIC ULCER
     Dosage: INJ
     Route: 042
     Dates: start: 20130516, end: 20130530

REACTIONS (1)
  - Cerebral infarction [Recovered/Resolved with Sequelae]
